FAERS Safety Report 5363527-4 (Version None)
Quarter: 2007Q2

REPORT INFORMATION
  Report Type: 
  Country: None (occurrence: None)
  Receive Date: 20070620
  Receipt Date: 20070402
  Transmission Date: 20071010
  Serious: No
  Sender: FDA-Public Use
  Company Number: US-BRISTOL-MYERS SQUIBB COMPANY-13735477

PATIENT
  Age: 79 Year
  Sex: Female
  Weight: 88 kg

DRUGS (5)
  1. FOSINOPRIL SODIUM [Suspect]
     Dates: start: 20070323, end: 20070330
  2. LEXAPRO [Concomitant]
  3. CALCIUM CHLORIDE [Concomitant]
  4. CORTICOSTEROID [Concomitant]
  5. ASACOL [Concomitant]

REACTIONS (1)
  - OEDEMA PERIPHERAL [None]
